FAERS Safety Report 24981808 (Version 1)
Quarter: 2025Q1

REPORT INFORMATION
  Report Type: Spontaneous
  Country: US (occurrence: None)
  Receive Date: 20250218
  Receipt Date: 20250218
  Transmission Date: 20250409
  Serious: Yes (Hospitalization)
  Sender: FDA-CTU
  Company Number: None

PATIENT
  Sex: Male

DRUGS (1)
  1. NUCALA [Suspect]
     Active Substance: MEPOLIZUMAB
     Indication: Asthma
     Dosage: OTHER QUANTITY : INJECT 1 PEN UNDER THE SKIN ;?OTHER FREQUENCY : EVERY 28 DAYS;?
     Route: 058

REACTIONS (2)
  - Oedema peripheral [None]
  - Asthma [None]
